FAERS Safety Report 8923017 (Version 1)
Quarter: 2012Q4

REPORT INFORMATION
  Report Type: 
  Country: JP (occurrence: JP)
  Receive Date: 20121123
  Receipt Date: 20121123
  Transmission Date: 20130627
  Serious: Yes (Other)
  Sender: FDA-Public Use
  Company Number: PHHY2012JP106464

PATIENT

DRUGS (1)
  1. NEORAL [Suspect]
     Route: 048

REACTIONS (1)
  - Renal disorder [Unknown]
